FAERS Safety Report 8152160-7 (Version None)
Quarter: 2012Q1

REPORT INFORMATION
  Report Type: 
  Country: None (occurrence: None)
  Receive Date: 20120103
  Receipt Date: 20111107
  Transmission Date: 20120608
  Serious: No
  Sender: FDA-Public Use
  Company Number: AE-2011-003317

PATIENT
  Sex: Male

DRUGS (4)
  1. INCIVEK [Suspect]
  2. RIBAVIRIN [Concomitant]
  3. AMOXICILLIN [Concomitant]
  4. PEGASYS [Concomitant]

REACTIONS (1)
  - RECTAL HAEMORRHAGE [None]
